FAERS Safety Report 4386092-7 (Version None)
Quarter: 2004Q2

REPORT INFORMATION
  Report Type: 
  Country: None (occurrence: None)
  Receive Date: 20040615
  Receipt Date: 20040403
  Transmission Date: 20050107
  Serious: Yes (Death, Hospitalization)
  Sender: FDA-Public Use
  Company Number: DIB20040001

PATIENT
  Age: 20 Year
  Sex: Female

DRUGS (2)
  1. PHENOXYBENZAMINE-HCL [Suspect]
     Indication: BLADDER DISORDER
     Dosage: 3MG/DAY
     Dates: start: 19830101, end: 19930101
  2. PHENOXYBENZAMINE-HCL [Suspect]
     Dosage: 5 MG, BID
     Dates: start: 19930101, end: 19950101

REACTIONS (2)
  - DEATH [None]
  - GASTROINTESTINAL CARCINOMA [None]
